FAERS Safety Report 13076867 (Version 2)
Quarter: 2017Q1

REPORT INFORMATION
  Report Type: Spontaneous
  Country: BE (occurrence: BE)
  Receive Date: 20161230
  Receipt Date: 20170213
  Transmission Date: 20170428
  Serious: Yes (Life-Threatening, Other)
  Sender: FDA-Public Use
  Company Number: BE-PFIZER INC-2016594488

PATIENT
  Age: 46 Year
  Sex: Female

DRUGS (2)
  1. SUNITINIB MALATE. [Suspect]
     Active Substance: SUNITINIB MALATE
     Indication: TRIPLE NEGATIVE BREAST CANCER
     Dosage: 37.5 MG, DAILY (CONTINUOUS DOSING)
  2. CAPECITABINE. [Suspect]
     Active Substance: CAPECITABINE
     Indication: TRIPLE NEGATIVE BREAST CANCER
     Dosage: 1000 MG/M2, CYCLIC (TWICE DAILY, 2 WEEKS ON/1 WEEK OFF)
     Route: 048

REACTIONS (9)
  - Cardiac failure acute [Recovered/Resolved]
  - Vomiting [Unknown]
  - Hypokinesia [Recovered/Resolved]
  - Nausea [Unknown]
  - Gastrooesophageal reflux disease [Unknown]
  - Neoplasm progression [Unknown]
  - Palmar-plantar erythrodysaesthesia syndrome [Unknown]
  - Akinesia [Recovered/Resolved]
  - Mucosal inflammation [Unknown]
